FAERS Safety Report 6057158-0 (Version None)
Quarter: 2009Q1

REPORT INFORMATION
  Report Type: 
  Country: None (occurrence: None)
  Receive Date: 20090129
  Receipt Date: 20071217
  Transmission Date: 20090719
  Serious: No
  Sender: FDA-Public Use
  Company Number: A0699321A

PATIENT
  Age: 37 Year
  Sex: Female

DRUGS (3)
  1. BUPROPION HYDROCHLORIDE [Suspect]
     Indication: DEPRESSION
     Dosage: 300MG PER DAY
     Route: 048
     Dates: start: 20070701, end: 20070701
  2. WELLBUTRIN XL [Suspect]
     Indication: DEPRESSION
     Dosage: 300MG PER DAY
     Route: 048
     Dates: start: 19970101
  3. DICYCLOMINE [Concomitant]

REACTIONS (1)
  - DIZZINESS [None]
